FAERS Safety Report 25039763 (Version 1)
Quarter: 2025Q1

REPORT INFORMATION
  Report Type: Report from Study
  Country: US (occurrence: US)
  Receive Date: 20250305
  Receipt Date: 20250305
  Transmission Date: 20250408
  Serious: Yes (Other)
  Sender: ALEXION PHARMACEUTICALS
  Company Number: US-AstraZeneca-CH-00815998A

PATIENT

DRUGS (1)
  1. DAPAGLIFLOZIN [Suspect]
     Active Substance: DAPAGLIFLOZIN
     Route: 065

REACTIONS (5)
  - Cerebrovascular accident [Unknown]
  - Thinking abnormal [Unknown]
  - Product use issue [Unknown]
  - Intentional product misuse [Unknown]
  - Product dose omission in error [Unknown]
